FAERS Safety Report 23261882 (Version 1)
Quarter: 2023Q4

REPORT INFORMATION
  Report Type: Report from Study
  Country: CA (occurrence: CA)
  Receive Date: 20231205
  Receipt Date: 20231205
  Transmission Date: 20240110
  Serious: Yes (Other)
  Sender: FDA-Public Use
  Company Number: CA-TAKEDA-2023TUS077795

PATIENT
  Age: 33 Year
  Sex: Female

DRUGS (3)
  1. VEDOLIZUMAB [Suspect]
     Active Substance: VEDOLIZUMAB
     Indication: Crohn^s disease
     Dosage: 300 MILLIGRAM
     Route: 042
     Dates: start: 20191216
  2. VEDOLIZUMAB [Suspect]
     Active Substance: VEDOLIZUMAB
     Dosage: 300 MILLIGRAM, Q4WEEKS
     Route: 042
     Dates: start: 20221122
  3. VEDOLIZUMAB [Suspect]
     Active Substance: VEDOLIZUMAB
     Dosage: 300 MILLIGRAM, Q4WEEKS
     Route: 042

REACTIONS (16)
  - Uveitis [Unknown]
  - Panic attack [Unknown]
  - Emotional distress [Unknown]
  - Anxiety [Unknown]
  - Drug ineffective [Unknown]
  - Off label use [Unknown]
  - Abdominal pain upper [Unknown]
  - Fistula [Unknown]
  - Abscess [Unknown]
  - Malaise [Unknown]
  - Abdominal pain [Unknown]
  - Product dose omission issue [Unknown]
  - Road traffic accident [Unknown]
  - Arthralgia [Unknown]
  - Anal fissure [Unknown]
  - Constipation [Unknown]

NARRATIVE: CASE EVENT DATE: 20221122
